FAERS Safety Report 7369266-2 (Version None)
Quarter: 2011Q1

REPORT INFORMATION
  Report Type: 
  Country: None (occurrence: None)
  Receive Date: 20110323
  Receipt Date: 20110316
  Transmission Date: 20110831
  Serious: Yes (Hospitalization)
  Sender: FDA-Public Use
  Company Number: A0904976A

PATIENT
  Age: 55 Year
  Sex: Female

DRUGS (3)
  1. SPIRIVA [Suspect]
     Route: 065
  2. ADVAIR DISKUS 100/50 [Suspect]
     Indication: CHRONIC OBSTRUCTIVE PULMONARY DISEASE
     Dosage: 1PUFF TWICE PER DAY
     Route: 055
     Dates: start: 20090601
  3. ALBUTEROL [Suspect]
     Route: 055

REACTIONS (4)
  - OROPHARYNGEAL PLAQUE [None]
  - STOMATITIS [None]
  - TONGUE COATED [None]
  - PNEUMONIA [None]
